FAERS Safety Report 10179877 (Version 2)
Quarter: 2014Q2

REPORT INFORMATION
  Report Type: Spontaneous
  Country: US (occurrence: US)
  Receive Date: 20140519
  Receipt Date: 20140519
  Transmission Date: 20141212
  Serious: No
  Sender: FDA-Public Use
  Company Number: US-AMGEN INC.-USASP2013069563

PATIENT
  Age: 73 Year
  Sex: Female

DRUGS (8)
  1. PROLIA [Suspect]
     Indication: OSTEOPOROSIS
     Dosage: UNK
     Route: 065
     Dates: start: 201210
  2. ATORVASTATIN                       /01326102/ [Concomitant]
     Dosage: UNK UNK, 1 QD
  3. METOPROLOL                         /00376902/ [Concomitant]
     Dosage: 50 MG, QD
  4. LISINOPRIL                         /00894002/ [Concomitant]
     Dosage: UNK UNK, QD
  5. CENTRUM SILVER                     /02363801/ [Concomitant]
  6. FISH OIL                           /00492901/ [Concomitant]
     Dosage: 1000 MG, 1 QD
  7. CALCIUM CITRATE W/MAGNESIUM/VITAMIN D NOS [Concomitant]
     Dosage: CALCIUM 500 MG, VITAMIN D 250 MG, MAGNESIUM 80 MG, 1 BID
  8. BABY ASPIRIN [Concomitant]

REACTIONS (3)
  - Hot flush [Unknown]
  - Tooth fracture [Unknown]
  - Pain in extremity [Recovered/Resolved]
